FAERS Safety Report 25626740 (Version 3)
Quarter: 2025Q3

REPORT INFORMATION
  Report Type: Spontaneous
  Country: US (occurrence: US)
  Receive Date: 20250731
  Receipt Date: 20250807
  Transmission Date: 20251020
  Serious: Yes (Hospitalization)
  Sender: AMGEN
  Company Number: US-AMGEN-USASP2025150354

PATIENT
  Sex: Male

DRUGS (1)
  1. TEPEZZA [Suspect]
     Active Substance: TEPROTUMUMAB-TRBW
     Indication: Endocrine ophthalmopathy
     Dosage: UNK UNK, Q3WK, (EVERY 3 WEEKS FOR 8 TOTAL INFUSIONS )
     Route: 040

REACTIONS (4)
  - Encephalopathy [Unknown]
  - Myalgia [Unknown]
  - Anxiety [Unknown]
  - Blood glucose increased [Unknown]
